FAERS Safety Report 7524660-1 (Version None)
Quarter: 2011Q2

REPORT INFORMATION
  Report Type: 
  Country: None (occurrence: None)
  Receive Date: 20110601
  Receipt Date: 20110601
  Transmission Date: 20111010
  Serious: Yes (Hospitalization)
  Sender: FDA-Public Use
  Company Number: None

PATIENT
  Sex: Female
  Weight: 61.6 kg

DRUGS (5)
  1. GENTAMYCIN SULFATE [Suspect]
     Indication: ENDOCARDITIS
     Dosage: 60MG Q8HR IV
     Route: 042
     Dates: start: 20100408, end: 20100415
  2. MEROPENEM [Concomitant]
  3. CIPROFLOXACIN [Concomitant]
  4. LEVETIRACETAM [Concomitant]
  5. VANCOMYCIN [Suspect]
     Indication: ENDOCARDITIS
     Dosage: 750MG Q8HR IV
     Route: 042
     Dates: start: 20100408, end: 20100415

REACTIONS (5)
  - DRUG HYPERSENSITIVITY [None]
  - ALANINE AMINOTRANSFERASE INCREASED [None]
  - DECREASED APPETITE [None]
  - DRUG RASH WITH EOSINOPHILIA AND SYSTEMIC SYMPTOMS [None]
  - ASPARTATE AMINOTRANSFERASE INCREASED [None]
